FAERS Safety Report 18812222 (Version 1)
Quarter: 2021Q1

REPORT INFORMATION
  Report Type: Spontaneous
  Country: US (occurrence: US)
  Receive Date: 20210130
  Receipt Date: 20210130
  Transmission Date: 20210419
  Serious: No
  Sender: FDA-Public Use
  Company Number: US-009507513-2101USA004030

PATIENT
  Age: 79 Year
  Sex: Male

DRUGS (10)
  1. PRINIVIL [Suspect]
     Active Substance: LISINOPRIL
     Indication: RENAL TUBULAR NECROSIS
     Dosage: UNK
     Route: 048
  2. PREDNISONE. [Concomitant]
     Active Substance: PREDNISONE
     Indication: RENAL TUBULAR INJURY
  3. ETHAMBUTOL HYDROCHLORIDE (+) ISONIAZID (+) PYRAZINAMIDE (+) RIFAMPIN [Concomitant]
     Indication: DISSEMINATED BACILLUS CALMETTE-GUERIN INFECTION
     Dosage: UNK
  4. PRINIVIL [Suspect]
     Active Substance: LISINOPRIL
     Indication: IGA NEPHROPATHY
  5. TICE BCG [Concomitant]
     Active Substance: BACILLUS CALMETTE-GUERIN SUBSTRAIN TICE LIVE ANTIGEN
     Indication: BLADDER CANCER
     Dosage: UNK
     Route: 043
  6. PREDNISONE. [Concomitant]
     Active Substance: PREDNISONE
     Indication: AZOTAEMIA
  7. PREDNISONE. [Concomitant]
     Active Substance: PREDNISONE
     Indication: RENAL TUBULAR NECROSIS
  8. PREDNISONE. [Concomitant]
     Active Substance: PREDNISONE
     Indication: IGA NEPHROPATHY
     Dosage: UNK, TAPER
  9. PRINIVIL [Suspect]
     Active Substance: LISINOPRIL
     Indication: RENAL TUBULAR INJURY
  10. PREDNISONE. [Concomitant]
     Active Substance: PREDNISONE
     Indication: PROTEINURIA
     Dosage: 50 MILLIGRAM

REACTIONS (1)
  - Off label use [Unknown]
